FAERS Safety Report 23809682 (Version 1)
Quarter: 2024Q2

REPORT INFORMATION
  Report Type: Spontaneous
  Country: IT (occurrence: IT)
  Receive Date: 20240502
  Receipt Date: 20240502
  Transmission Date: 20240715
  Serious: Yes (Other)
  Sender: FDA-Public Use
  Company Number: IT-Santen Oy-2024-ITA-003623

PATIENT

DRUGS (1)
  1. LATANOPROST\NETARSUDIL MESYLATE [Suspect]
     Active Substance: LATANOPROST\NETARSUDIL MESYLATE
     Indication: Product used for unknown indication
     Dosage: UNK, IN BOTH EYES
     Route: 047
     Dates: start: 20240421

REACTIONS (2)
  - Blindness transient [Not Recovered/Not Resolved]
  - Eye inflammation [Unknown]

NARRATIVE: CASE EVENT DATE: 20240421
